FAERS Safety Report 5741890-X (Version None)
Quarter: 2008Q2

REPORT INFORMATION
  Report Type: 
  Country: None (occurrence: None)
  Receive Date: 20080515
  Receipt Date: 20080502
  Transmission Date: 20081010
  Serious: Yes (Hospitalization, Other)
  Sender: FDA-Public Use
  Company Number: 2008BI010748

PATIENT
  Sex: Female
  Weight: 70.7611 kg

DRUGS (1)
  1. TYSABRI [Suspect]
     Indication: MULTIPLE SCLEROSIS
     Dosage: IV
     Route: 042
     Dates: start: 20050101

REACTIONS (22)
  - AMNESIA [None]
  - ANHEDONIA [None]
  - ANXIETY [None]
  - BLOOD POTASSIUM ABNORMAL [None]
  - CARDIAC PERFORATION [None]
  - CRYING [None]
  - DYSGRAPHIA [None]
  - EMOTIONAL DISTRESS [None]
  - FATIGUE [None]
  - FEELING OF DESPAIR [None]
  - FOOT FRACTURE [None]
  - INSOMNIA [None]
  - MOTOR DYSFUNCTION [None]
  - NASOPHARYNGITIS [None]
  - OEDEMA PERIPHERAL [None]
  - READING DISORDER [None]
  - RENAL PAIN [None]
  - SYNCOPE [None]
  - TEMPERATURE INTOLERANCE [None]
  - TREMOR [None]
  - VIRAL INFECTION [None]
  - WEIGHT DECREASED [None]
